FAERS Safety Report 12958414 (Version 1)
Quarter: 2016Q4

REPORT INFORMATION
  Report Type: Spontaneous
  Country: US (occurrence: US)
  Receive Date: 20161121
  Receipt Date: 20161121
  Transmission Date: 20170207
  Serious: No
  Sender: FDA-Public Use
  Company Number: US-TEVA-660471USA

PATIENT
  Age: 84 Year
  Sex: Female

DRUGS (2)
  1. FUROSEMIDE. [Suspect]
     Active Substance: FUROSEMIDE
     Indication: PERIPHERAL SWELLING
     Route: 065
  2. ENTRESTO [Concomitant]
     Active Substance: SACUBITRIL\VALSARTAN
     Dosage: 24/26MG
     Dates: start: 201512

REACTIONS (8)
  - Weight decreased [Unknown]
  - Chest discomfort [Unknown]
  - Pollakiuria [Unknown]
  - Nocturia [Unknown]
  - Intentional product misuse [Unknown]
  - Blood potassium decreased [Unknown]
  - Electrolyte imbalance [Unknown]
  - Peripheral swelling [Unknown]

NARRATIVE: CASE EVENT DATE: 201603
